FAERS Safety Report 9168503 (Version 1)
Quarter: 2013Q1

REPORT INFORMATION
  Report Type: Spontaneous
  Country: CN (occurrence: None)
  Receive Date: 20130307
  Receipt Date: 20130307
  Transmission Date: 20140127
  Serious: Yes (Congenital Anomaly)
  Sender: FDA-Public Use
  Company Number: B0872782A

PATIENT
  Sex: 0

DRUGS (1)
  1. LAMIVUDINE-HBV [Suspect]
     Indication: CHRONIC HEPATITIS B
     Dosage: TRANSPLACENTARY
     Route: 064

REACTIONS (2)
  - Haemangioma congenital [None]
  - Maternal drugs affecting foetus [None]
